FAERS Safety Report 5702798-9 (Version None)
Quarter: 2008Q2

REPORT INFORMATION
  Report Type: 
  Country: None (occurrence: None)
  Receive Date: 20080411
  Receipt Date: 20080401
  Transmission Date: 20081010
  Serious: Yes (Hospitalization)
  Sender: FDA-Public Use
  Company Number: US-LLY01-US200601004992

PATIENT
  Sex: Female
  Weight: 94.784 kg

DRUGS (11)
  1. BYETTA [Suspect]
     Dosage: 5 UG, 2/D
     Route: 058
     Dates: start: 20051031, end: 20051127
  2. BYETTA [Suspect]
     Dosage: 10 UG, 2/D
     Route: 058
     Dates: start: 20051127, end: 20051230
  3. ROSIGLITAZONE [Concomitant]
     Dosage: UNK, UNK
     Dates: start: 20050101
  4. METFORMIN HCL [Concomitant]
     Dosage: UNK, UNK
     Dates: start: 20050101
  5. AMARYL [Concomitant]
     Dates: start: 20050101
  6. STARLIX [Concomitant]
     Dates: start: 20000101
  7. TRAZODONE HCL [Concomitant]
     Dates: start: 20030101
  8. LEXAPRO [Concomitant]
     Dates: start: 20030101
  9. EFFEXOR /USA/ [Concomitant]
     Dates: start: 20030101
  10. LIPITOR [Concomitant]
     Dates: start: 20040101
  11. TRICOR [Concomitant]
     Dates: start: 20040101, end: 20051230

REACTIONS (7)
  - DECREASED APPETITE [None]
  - DIARRHOEA [None]
  - NAUSEA [None]
  - PANCREATITIS [None]
  - URINARY TRACT INFECTION [None]
  - VOMITING [None]
  - WEIGHT DECREASED [None]
